FAERS Safety Report 7620443-2 (Version None)
Quarter: 2011Q3

REPORT INFORMATION
  Report Type: 
  Country: None (occurrence: None)
  Receive Date: 20110719
  Receipt Date: 20110713
  Transmission Date: 20111222
  Serious: Yes (Hospitalization, Other)
  Sender: FDA-Public Use
  Company Number: US-AMGEN-USASP2011034482

PATIENT
  Age: 60 Year
  Sex: Male
  Weight: 71.655 kg

DRUGS (8)
  1. PREDNISONE [Concomitant]
     Dosage: 15 MG, QD
     Route: 048
  2. METOPROLOL TARTRATE [Concomitant]
     Dosage: 50 MG, QD
     Route: 048
  3. RITUXAN [Concomitant]
  4. FOLIC ACID [Concomitant]
     Dosage: 1 MG, QD
     Route: 048
  5. DANAZOL [Concomitant]
     Dosage: 200 MG, QD
     Route: 048
  6. NPLATE [Suspect]
     Indication: IDIOPATHIC THROMBOCYTOPENIC PURPURA
     Dosage: 125 A?G, QWK
     Route: 058
     Dates: start: 20100401, end: 20100524
  7. RHOGAM [Concomitant]
  8. LISINOPRIL [Concomitant]
     Dosage: 2.5 MG, QD
     Route: 048

REACTIONS (2)
  - RETINAL ARTERY EMBOLISM [None]
  - MEDICATION ERROR [None]
